FAERS Safety Report 15392120 (Version 1)
Quarter: 2018Q3

REPORT INFORMATION
  Report Type: Spontaneous
  Country: DE (occurrence: DE)
  Receive Date: 20180917
  Receipt Date: 20180917
  Transmission Date: 20181010
  Serious: Yes (Other)
  Sender: FDA-Public Use
  Company Number: DE-BAUSCH-BL-2018-025254

PATIENT
  Age: 31 Year
  Sex: Female

DRUGS (4)
  1. EVEROLIMUS. [Suspect]
     Active Substance: EVEROLIMUS
     Indication: RENAL TRANSPLANT
     Route: 048
  2. PREDNISOLONE. [Suspect]
     Active Substance: PREDNISOLONE
     Indication: RENAL TRANSPLANT
     Route: 065
  3. MYCOPHENOLATE MOFETIL. [Suspect]
     Active Substance: MYCOPHENOLATE MOFETIL
     Indication: RENAL TRANSPLANT
     Route: 065
  4. TACROLIMUS. [Suspect]
     Active Substance: TACROLIMUS
     Indication: RENAL TRANSPLANT
     Route: 065

REACTIONS (2)
  - Viral load increased [Recovering/Resolving]
  - Cytomegalovirus viraemia [Recovering/Resolving]
